FAERS Safety Report 5679877-8 (Version None)
Quarter: 2008Q1

REPORT INFORMATION
  Report Type: 
  Country: None (occurrence: None)
  Receive Date: 20080321
  Receipt Date: 20080310
  Transmission Date: 20080703
  Serious: Yes (Hospitalization)
  Sender: FDA-Public Use
  Company Number: 0032

PATIENT
  Age: 76 Year
  Sex: Female

DRUGS (5)
  1. INDOCIN [Suspect]
     Indication: ANTIPYRESIS
     Dosage: 25 MG, RC
     Route: 054
     Dates: start: 20071105, end: 20071106
  2. VALSARTAN [Concomitant]
  3. GLYCEOL [Concomitant]
  4. OMEPRAZOLE [Concomitant]
  5. NICARDIPINE HYDROCHLORIDE [Concomitant]

REACTIONS (2)
  - CEREBELLAR HAEMORRHAGE [None]
  - CEREBRAL HAEMORRHAGE [None]
